FAERS Safety Report 8936539 (Version 1)
Quarter: 2012Q4

REPORT INFORMATION
  Report Type: 
  Country: US (occurrence: US)
  Receive Date: 20121130
  Receipt Date: 20121130
  Transmission Date: 20130627
  Serious: No
  Sender: FDA-Public Use
  Company Number: US-ASTRAZENECA-2012SE02618

PATIENT
  Age: 53 Year
  Sex: Female
  Weight: 71.2 kg

DRUGS (11)
  1. SEROQUEL [Suspect]
     Indication: SLEEP DISORDER
     Route: 048
  2. SEROQUEL [Suspect]
     Indication: BIPOLAR DISORDER
     Route: 048
  3. MORPHINE [Suspect]
     Route: 065
  4. LISINOPRIL [Concomitant]
     Indication: HYPERTENSION
     Route: 048
  5. NAPROXEN [Concomitant]
     Indication: TENDONITIS
  6. LEXAPRO [Concomitant]
     Indication: BIPOLAR DISORDER
  7. BALBUTRINE [Concomitant]
     Indication: BIPOLAR DISORDER
  8. TOPAMAX [Concomitant]
     Indication: BIPOLAR DISORDER
  9. WELLBUTRIN [Concomitant]
  10. VITAMIN B12 [Concomitant]
  11. CENTRUM SILVER MULTIVITAMINS [Concomitant]

REACTIONS (11)
  - Insomnia [Unknown]
  - Tachyphrenia [Unknown]
  - Multiple allergies [Unknown]
  - Sinusitis [Unknown]
  - Cough [Unknown]
  - Bipolar disorder [Unknown]
  - Dry mouth [Unknown]
  - Drug hypersensitivity [Unknown]
  - Drug effect decreased [Unknown]
  - Drug dose omission [Unknown]
  - Off label use [Unknown]
